FAERS Safety Report 7907663-4 (Version None)
Quarter: 2011Q4

REPORT INFORMATION
  Report Type: 
  Country: None (occurrence: None)
  Receive Date: 20111110
  Receipt Date: 20111107
  Transmission Date: 20120403
  Serious: Yes (Other)
  Sender: FDA-Public Use
  Company Number: US-B.I. PHARMACEUTICALS,INC./RIDGEFIELD-2011-BP-24794BP

PATIENT
  Sex: Male

DRUGS (12)
  1. SPIRIVA [Suspect]
     Indication: CHRONIC OBSTRUCTIVE PULMONARY DISEASE
  2. ZOCOR [Concomitant]
     Dosage: 40 MG
  3. POK [Concomitant]
     Dosage: 200 MG
  4. GABAPENTIN [Concomitant]
     Dosage: 1200 MG
  5. VITAMIN B COMPLEX CAP [Concomitant]
  6. SILVER SULFADIAZINE [Concomitant]
     Indication: HEAD INJURY
  7. DOCUSATE SODIUM [Concomitant]
  8. ERBITUX CHEMO [Concomitant]
  9. VITAMIN D2 [Concomitant]
  10. PRISTIQ [Concomitant]
  11. NORCO [Concomitant]
  12. TRIAMCINOLONE [Concomitant]

REACTIONS (1)
  - NEOPLASM MALIGNANT [None]
